FAERS Safety Report 18586974 (Version 2)
Quarter: 2020Q4

REPORT INFORMATION
  Report Type: Report from Study
  Country: None (occurrence: FR)
  Receive Date: 20201207
  Receipt Date: 20201210
  Transmission Date: 20210114
  Serious: Yes (Death, Hospitalization)
  Sender: FDA-Public Use
  Company Number: FR-ABBVIE-17K-056-3061597-00

PATIENT
  Age: 71 Year
  Sex: Male
  Weight: 55 kg

DRUGS (2)
  1. IBRUTINIB [Suspect]
     Active Substance: IBRUTINIB
     Route: 048
     Dates: end: 20171015
  2. IBRUTINIB [Suspect]
     Active Substance: IBRUTINIB
     Indication: MANTLE CELL LYMPHOMA
     Route: 048
     Dates: start: 20161015, end: 20171015

REACTIONS (1)
  - Lymphocytic lymphoma [Fatal]

NARRATIVE: CASE EVENT DATE: 20161122
